FAERS Safety Report 8093443-9 (Version None)
Quarter: 2012Q1

REPORT INFORMATION
  Report Type: 
  Country: None (occurrence: None)
  Receive Date: 20120128
  Receipt Date: 20110901
  Transmission Date: 20120608
  Serious: No
  Sender: FDA-Public Use
  Company Number: US-ABBOTT-11P-163-0851147-00

PATIENT
  Sex: Male

DRUGS (2)
  1. IMURAN [Concomitant]
     Indication: PRODUCT USED FOR UNKNOWN INDICATION
  2. HUMIRA [Suspect]
     Indication: CROHN'S DISEASE
     Dates: start: 20110801

REACTIONS (5)
  - SINUSITIS [None]
  - UPPER RESPIRATORY TRACT INFECTION [None]
  - RHINORRHOEA [None]
  - PYREXIA [None]
  - SINUS CONGESTION [None]
